FAERS Safety Report 5512785-1 (Version None)
Quarter: 2007Q4

REPORT INFORMATION
  Report Type: 
  Country: None (occurrence: None)
  Receive Date: 20071112
  Receipt Date: 20071107
  Transmission Date: 20080405
  Serious: Yes (Hospitalization)
  Sender: FDA-Public Use
  Company Number: IT-AVENTIS-200715206EU

PATIENT
  Sex: Female

DRUGS (1)
  1. FUROSEMIDE [Suspect]
     Dosage: DOSE: UNK

REACTIONS (1)
  - CARDIAC FAILURE [None]
